FAERS Safety Report 10249443 (Version 2)
Quarter: 2014Q2

REPORT INFORMATION
  Report Type: Spontaneous
  Country: US (occurrence: US)
  Receive Date: 20140620
  Receipt Date: 20140620
  Transmission Date: 20141212
  Serious: Yes (Other)
  Sender: FDA-Public Use
  Company Number: PHHY2014US063877

PATIENT
  Sex: Male

DRUGS (19)
  1. LIORESAL INTRATECAL [Suspect]
     Indication: MUSCLE SPASTICITY
     Dosage: 100 UG/DAY
     Route: 037
  2. BACLOFEN [Suspect]
     Dosage: UNK UKN, UNK
     Route: 048
  3. ACETAMINOPHEN (PARACETAMOL), CAFFEINE [Suspect]
     Dosage: UNK UKN, PRN
     Route: 048
  4. GABAPENTIN [Suspect]
     Dosage: UNK UKN, UNK
     Route: 048
  5. ADDERALL [Suspect]
     Dosage: UNK UKN, UNK
     Route: 048
  6. AMITIZA [Suspect]
     Dosage: UNK UKN, UNK
     Route: 048
  7. DANTRIUM [Suspect]
     Dosage: UNK UKN, UNK
     Route: 048
  8. LEVOVIR [Suspect]
     Dosage: UNK UKN, UNK
     Route: 048
  9. KEFLEX                                  /UNK/ [Suspect]
     Dosage: UNK UKN, UNK
     Route: 048
  10. MILK OF MAGNESIA [Suspect]
     Dosage: UNK UKN, UNK
     Route: 048
  11. NORCO [Suspect]
     Dosage: UNK UKN, UNK
     Route: 048
  12. VALIUM [Suspect]
     Dosage: UNK UKN, PRN
     Route: 048
  13. ZOLOFT [Suspect]
     Dosage: UNK UKN, UNK
     Route: 048
  14. ASCORBIC ACID [Suspect]
     Dosage: UNK UKN, UNK
     Route: 048
  15. BISACODYL [Suspect]
     Dosage: UNK UKN, UNK
  16. INSULIN [Suspect]
     Dosage: UNK UKN, UNK
  17. OXYBUTYNIN [Suspect]
     Dosage: UNK UKN, UNK
     Route: 048
  18. FENA [Suspect]
     Dosage: UNK UKN, UNK
     Route: 048
  19. ZINC [Suspect]
     Dosage: UNK UKN, UNK
     Route: 048

REACTIONS (9)
  - Visual impairment [Unknown]
  - Vision blurred [Recovered/Resolved]
  - Abdominal pain [Recovered/Resolved]
  - Post lumbar puncture syndrome [Recovered/Resolved]
  - Cerebrospinal fluid leakage [Recovered/Resolved]
  - Muscle spasms [Recovered/Resolved]
  - Procedural complication [None]
  - Cranial nerve disorder [None]
  - Strabismus [None]
